FAERS Safety Report 9308096 (Version 3)
Quarter: 2014Q2

REPORT INFORMATION
  Report Type: Spontaneous
  Country: US (occurrence: US)
  Receive Date: 20130524
  Receipt Date: 20140630
  Transmission Date: 20141212
  Serious: Yes (Hospitalization, Disabling, Other)
  Sender: FDA-Public Use
  Company Number: US-009507513-1305USA011624

PATIENT
  Sex: Male

DRUGS (1)
  1. PROPECIA [Suspect]
     Indication: ALOPECIA
     Dosage: 1 MG, QD
     Route: 048
     Dates: start: 1999

REACTIONS (26)
  - Prostatic operation [Unknown]
  - Adverse event [Not Recovered/Not Resolved]
  - Amnesia [Not Recovered/Not Resolved]
  - Penile size reduced [Not Recovered/Not Resolved]
  - Testicular disorder [Not Recovered/Not Resolved]
  - Painful ejaculation [Not Recovered/Not Resolved]
  - Disturbance in attention [Not Recovered/Not Resolved]
  - Hirsutism [Not Recovered/Not Resolved]
  - Penis injury [Not Recovered/Not Resolved]
  - Injury [Not Recovered/Not Resolved]
  - Brain injury [Not Recovered/Not Resolved]
  - Tooth loss [Not Recovered/Not Resolved]
  - General physical health deterioration [Not Recovered/Not Resolved]
  - Erectile dysfunction [Not Recovered/Not Resolved]
  - Penile haemorrhage [Unknown]
  - Sexual dysfunction [Not Recovered/Not Resolved]
  - Gynaecomastia [Not Recovered/Not Resolved]
  - Loss of libido [Not Recovered/Not Resolved]
  - Testicular pain [Not Recovered/Not Resolved]
  - Semen volume decreased [Not Recovered/Not Resolved]
  - Prostatic operation [Unknown]
  - Rib fracture [Unknown]
  - Eye operation [Unknown]
  - Anxiety [Not Recovered/Not Resolved]
  - Depression [Not Recovered/Not Resolved]
  - Thinking abnormal [Not Recovered/Not Resolved]
